FAERS Safety Report 16094847 (Version 1)
Quarter: 2019Q1

REPORT INFORMATION
  Report Type: Spontaneous
  Country: US (occurrence: US)
  Receive Date: 20190320
  Receipt Date: 20190320
  Transmission Date: 20190418
  Serious: Yes (Hospitalization, Other)
  Sender: FDA-Public Use
  Company Number: US-ABBVIE-19S-163-2706424-00

PATIENT
  Age: 56 Year
  Sex: Female

DRUGS (8)
  1. VITAMIN C [Concomitant]
     Active Substance: ASCORBIC ACID
     Indication: PRODUCT USED FOR UNKNOWN INDICATION
  2. SYNTHROID [Suspect]
     Active Substance: LEVOTHYROXINE SODIUM
     Route: 048
     Dates: start: 201812
  3. TURMERIC [Concomitant]
     Active Substance: HERBALS\TURMERIC
     Indication: PRODUCT USED FOR UNKNOWN INDICATION
  4. SYNTHROID [Suspect]
     Active Substance: LEVOTHYROXINE SODIUM
     Dosage: ONE TABLET EVERY OTHER DAY ALTERNATING WITH 100 MCG SYNTHROID
     Route: 048
     Dates: end: 201812
  5. STRESS B [Concomitant]
     Indication: PRODUCT USED FOR UNKNOWN INDICATION
  6. FISH OIL [Concomitant]
     Active Substance: FISH OIL
     Indication: PRODUCT USED FOR UNKNOWN INDICATION
  7. VITAMIN D [Concomitant]
     Active Substance: CHOLECALCIFEROL
     Indication: PRODUCT USED FOR UNKNOWN INDICATION
  8. SYNTHROID [Suspect]
     Active Substance: LEVOTHYROXINE SODIUM
     Indication: HYPOTHYROIDISM
     Dosage: ONE TABLET EVERY OTHER DAY ALTERNATING WITH SYNTHROID 88 MCG .
     Route: 048
     Dates: end: 201812

REACTIONS (15)
  - Limb injury [Not Recovered/Not Resolved]
  - Low density lipoprotein increased [Recovered/Resolved]
  - Blood cholesterol increased [Recovering/Resolving]
  - Wrist fracture [Recovered/Resolved]
  - Dental caries [Recovered/Resolved]
  - Hiatus hernia [Not Recovered/Not Resolved]
  - Large intestinal ulcer [Recovered/Resolved]
  - Fall [Not Recovered/Not Resolved]
  - Head injury [Not Recovered/Not Resolved]
  - Oesophageal irritation [Recovered/Resolved]
  - Tooth abscess [Recovered/Resolved]
  - Blood triglycerides increased [Recovered/Resolved]
  - Tooth fracture [Not Recovered/Not Resolved]
  - Tooth disorder [Recovered/Resolved]
  - Peripheral swelling [Recovering/Resolving]

NARRATIVE: CASE EVENT DATE: 200806
